FAERS Safety Report 10520879 (Version 1)
Quarter: 2014Q4

REPORT INFORMATION
  Report Type: Spontaneous
  Country: GB (occurrence: GB)
  Receive Date: 20141016
  Receipt Date: 20141016
  Transmission Date: 20150528
  Serious: Yes (Other)
  Sender: FDA-Public Use
  Company Number: PHHY2014GB132692

PATIENT
  Age: 52 Year
  Sex: Female

DRUGS (1)
  1. VENLAFAXINE [Suspect]
     Active Substance: VENLAFAXINE HYDROCHLORIDE
     Indication: PRODUCT USED FOR UNKNOWN INDICATION
     Dates: start: 201002, end: 2014

REACTIONS (13)
  - Fatigue [Unknown]
  - Influenza like illness [Unknown]
  - Restlessness [Unknown]
  - Anger [Unknown]
  - Drug dependence [Unknown]
  - Intentional product misuse [Unknown]
  - Nasal congestion [Unknown]
  - Tinnitus [Unknown]
  - Nausea [Unknown]
  - Decreased appetite [Unknown]
  - Drug withdrawal syndrome [Unknown]
  - Quality of life decreased [Unknown]
  - Headache [Unknown]
